FAERS Safety Report 6936029-9 (Version None)
Quarter: 2010Q3

REPORT INFORMATION
  Report Type: 
  Country: None (occurrence: None)
  Receive Date: 20100823
  Receipt Date: 20091022
  Transmission Date: 20110219
  Serious: Yes (Other)
  Sender: FDA-Public Use
  Company Number: US-KINGPHARMUSA00001-K200901316

PATIENT
  Age: 57 Year
  Sex: Female
  Weight: 58.05 kg

DRUGS (1)
  1. SEPTRA [Suspect]
     Indication: STAPHYLOCOCCAL INFECTION
     Dosage: UNK
     Route: 048
     Dates: start: 20091013, end: 20091022

REACTIONS (6)
  - DARK CIRCLES UNDER EYES [None]
  - MYALGIA [None]
  - OCULAR ICTERUS [None]
  - PAIN [None]
  - PYREXIA [None]
  - URTICARIA [None]
